FAERS Safety Report 9419471 (Version 2)
Quarter: 2013Q4

REPORT INFORMATION
  Report Type: Spontaneous
  Country: BE (occurrence: BE)
  Receive Date: 20130725
  Receipt Date: 20131017
  Transmission Date: 20140711
  Serious: Yes (Hospitalization, Other)
  Sender: FDA-Public Use
  Company Number: BE-SANOFI-AVENTIS-2013SA072400

PATIENT
  Age: 77 Year
  Sex: Female

DRUGS (2)
  1. CLEXANE [Suspect]
     Indication: PHLEBITIS
     Route: 058
     Dates: start: 20130510, end: 20130510
  2. TILDIEM [Concomitant]

REACTIONS (5)
  - Cardiac arrest [Not Recovered/Not Resolved]
  - Syncope [Not Recovered/Not Resolved]
  - Cardiac failure [Not Recovered/Not Resolved]
  - Atrial fibrillation [Not Recovered/Not Resolved]
  - Bradycardia [Not Recovered/Not Resolved]
